FAERS Safety Report 9051137 (Version 1)
Quarter: 2013Q1

REPORT INFORMATION
  Report Type: Spontaneous
  Country: US (occurrence: US)
  Receive Date: 20130206
  Receipt Date: 20130206
  Transmission Date: 20140127
  Serious: No
  Sender: FDA-Public Use
  Company Number: US-PFIZER INC-2013034056

PATIENT
  Age: 75 Year
  Sex: Female
  Weight: 149.66 kg

DRUGS (1)
  1. XALKORI [Suspect]
     Indication: LUNG NEOPLASM MALIGNANT
     Dosage: 250 MG, 2X/DAY
     Route: 048
     Dates: start: 20120928

REACTIONS (3)
  - Tooth fracture [Unknown]
  - Constipation [Unknown]
  - Device failure [Unknown]
